FAERS Safety Report 4988510-X (Version None)
Quarter: 2006Q2

REPORT INFORMATION
  Report Type: 
  Country: None (occurrence: None)
  Receive Date: 20060426
  Receipt Date: 20060407
  Transmission Date: 20061013
  Serious: Yes (Disabling, Other)
  Sender: FDA-Public Use
  Company Number: US200604001802

PATIENT
  Sex: Male

DRUGS (3)
  1. ALIMTA [Suspect]
     Indication: NON-SMALL CELL LUNG CANCER
     Dosage: 500 MG/M2, INTRAVENOUS
     Route: 042
  2. GEMZAR [Suspect]
     Indication: NON-SMALL CELL LUNG CANCER
     Dosage: 1000 MG/M2
  3. NAVELBINE [Concomitant]

REACTIONS (4)
  - IMPAIRED DRIVING ABILITY [None]
  - MALIGNANT NEOPLASM PROGRESSION [None]
  - NEUROPATHY [None]
  - PERONEAL NERVE PALSY [None]
